FAERS Safety Report 21195655 (Version 2)
Quarter: 2022Q3

REPORT INFORMATION
  Report Type: Spontaneous
  Country: US (occurrence: US)
  Receive Date: 20220810
  Receipt Date: 20220912
  Transmission Date: 20221027
  Serious: No
  Sender: FDA-Public Use
  Company Number: US-PFIZER INC-202201046006

PATIENT
  Age: 65 Year
  Sex: Female
  Weight: 88.435 kg

DRUGS (3)
  1. PAXLOVID [Suspect]
     Active Substance: NIRMATRELVIR\RITONAVIR
     Indication: COVID-19 treatment
     Dosage: 150 MG, 2X/DAY
     Dates: start: 20220727, end: 20220728
  2. UP AND UP DAYTIME SEVERE COLD AND FLU [Concomitant]
     Dosage: UNK
     Dates: start: 20220727, end: 20220731
  3. NITE TIME COLD + FLU [Concomitant]
     Dosage: UNK
     Dates: start: 20220727, end: 20220731

REACTIONS (3)
  - Dysgeusia [Recovered/Resolved]
  - Ageusia [Unknown]
  - Incorrect dose administered [Unknown]

NARRATIVE: CASE EVENT DATE: 20220101
